FAERS Safety Report 8791990 (Version 5)
Quarter: 2013Q1

REPORT INFORMATION
  Report Type: Report from Study
  Country: JP (occurrence: JP)
  Receive Date: 20120918
  Receipt Date: 20130201
  Transmission Date: 20140127
  Serious: Yes (Other)
  Sender: FDA-Public Use
  Company Number: JP-PFIZER INC-2012226928

PATIENT
  Age: 44 Year
  Sex: Male

DRUGS (26)
  1. LIPITOR [Suspect]
     Indication: HYPERLIPIDAEMIA
     Dosage: 10 MG, 1X/DAY
     Route: 048
  2. PROGRAF [Suspect]
     Indication: LUPUS NEPHRITIS
     Dosage: 3 MG, DAILY
     Route: 048
     Dates: start: 20080529, end: 20110630
  3. PROGRAF [Suspect]
     Dosage: 3 MG, DAILY
     Route: 048
     Dates: start: 20110712
  4. PREDNISOLONE [Suspect]
     Indication: LUPUS NEPHRITIS
     Dosage: 60 MG, UNKNOWN/D
     Route: 048
     Dates: end: 20080528
  5. PREDNISOLONE [Suspect]
     Dosage: 40 MG, UNKNOWN/D
     Route: 048
     Dates: start: 20080529, end: 20080612
  6. PREDNISOLONE [Suspect]
     Dosage: 30 MG, UNKNOWN/D
     Route: 048
     Dates: start: 20080613, end: 20080626
  7. PREDNISOLONE [Suspect]
     Dosage: 25 MG, UNKNOWN/D
     Route: 048
     Dates: start: 20080627, end: 20080716
  8. PREDNISOLONE [Suspect]
     Dosage: 20 MG, UNKNOWN/D
     Route: 048
     Dates: start: 20080717, end: 20080730
  9. PREDNISOLONE [Suspect]
     Dosage: 17.5 MG, UNKNOWN/D
     Route: 048
     Dates: start: 20080731, end: 20081119
  10. PREDNISOLONE [Suspect]
     Dosage: 15 MG, UNKNOWN/D
     Route: 048
     Dates: start: 20081120, end: 20081217
  11. PREDNISOLONE [Suspect]
     Dosage: 12.5 MG, UNKNOWN/D
     Route: 048
     Dates: start: 20081218, end: 20090417
  12. PREDNISOLONE [Suspect]
     Dosage: 10 MG, UNKNOWN/D
     Route: 048
     Dates: start: 20080418
  13. BLOPRESS [Concomitant]
     Dosage: UNK
     Dates: start: 20080528, end: 20120217
  14. CINAL [Concomitant]
     Dosage: UNK
     Dates: end: 20080827
  15. ALFAROL [Concomitant]
     Dosage: UNK
     Route: 048
  16. ISCOTIN [Concomitant]
     Dosage: UNK
     Route: 048
  17. BONALON [Concomitant]
     Dosage: UNK
  18. BAYASPIRIN [Concomitant]
     Dosage: UNK
     Dates: end: 20080702
  19. AMOBAN [Concomitant]
     Dosage: UNK
     Dates: end: 20090706
  20. WARFARIN [Concomitant]
     Dosage: UNK
     Route: 048
     Dates: start: 20080613
  21. ZETIA [Concomitant]
     Dosage: UNK
     Dates: start: 20080924, end: 20090417
  22. COMELIAN [Concomitant]
     Dosage: UNK
     Dates: start: 20081022, end: 20120517
  23. SELBEX [Concomitant]
     Dosage: UNK
     Route: 048
     Dates: start: 20081217
  24. TAKEPRON [Concomitant]
     Dosage: UNK
     Dates: start: 20081217
  25. TAMIFLU [Concomitant]
     Dosage: UNK
     Dates: start: 20090108, end: 20090113
  26. CALONAL [Concomitant]
     Dosage: UNK
     Route: 048
     Dates: start: 20090108, end: 20090113

REACTIONS (3)
  - Cellulitis [Recovered/Resolved]
  - Glycosylated haemoglobin increased [Recovered/Resolved]
  - Influenza [Recovered/Resolved]
